FAERS Safety Report 12471392 (Version 1)
Quarter: 2016Q2

REPORT INFORMATION
  Report Type: Spontaneous
  Country: US (occurrence: None)
  Receive Date: 20160615
  Receipt Date: 20160615
  Transmission Date: 20160815
  Serious: Yes (Hospitalization, Other)
  Sender: FDA-Public Use
  Company Number: None

PATIENT
  Age: 58 Year
  Sex: Female
  Weight: 119 kg

DRUGS (2)
  1. CISATRACURIUM BESYLATE, 10MG/1ML SANDOZ [Suspect]
     Active Substance: CISATRACURIUM BESYLATE
     Indication: SURGERY
     Route: 040
     Dates: start: 20160425, end: 20160425
  2. CISATRACURIUM BESYLATE, 10MG/1ML SANDOZ [Suspect]
     Active Substance: CISATRACURIUM BESYLATE
     Indication: CHRONIC KIDNEY DISEASE
     Route: 040
     Dates: start: 20160425, end: 20160425

REACTIONS (2)
  - Accidental overdose [None]
  - Product label confusion [None]

NARRATIVE: CASE EVENT DATE: 20160425
